FAERS Safety Report 14967303 (Version 1)
Quarter: 2018Q3

REPORT INFORMATION
  Report Type: Spontaneous
  Country: DK (occurrence: DK)
  Receive Date: 20180604
  Receipt Date: 20180604
  Transmission Date: 20181010
  Serious: No
  Sender: FDA-Public Use
  Company Number: DK-CHEPLA-C20180095

PATIENT
  Age: 32 Year
  Sex: Female

DRUGS (3)
  1. HUMAN FIBRINOGEN [Concomitant]
  2. TRANSRETINOIC ACID (ATRA) [Suspect]
     Active Substance: TRETINOIN
     Indication: ACUTE PROMYELOCYTIC LEUKAEMIA
     Route: 048
  3. ERYTHROPOIETIN [Concomitant]
     Active Substance: ERYTHROPOIETIN

REACTIONS (2)
  - Haemoglobin decreased [Recovered/Resolved]
  - Refusal of treatment by patient [None]
